FAERS Safety Report 18290284 (Version 2)
Quarter: 2020Q3

REPORT INFORMATION
  Report Type: Report from Study
  Country: FR (occurrence: FR)
  Receive Date: 20200921
  Receipt Date: 20200929
  Transmission Date: 20201103
  Serious: Yes (Hospitalization)
  Sender: FDA-Public Use
  Company Number: FR-PFIZER INC-2020357112

PATIENT
  Age: 51 Year
  Sex: Male

DRUGS (9)
  1. CARBOPLATIN. [Suspect]
     Active Substance: CARBOPLATIN
     Indication: BLADDER TRANSITIONAL CELL CARCINOMA
     Dosage: UNK
     Route: 042
     Dates: start: 20200709, end: 20200807
  2. INDAPAMIDE. [Concomitant]
     Active Substance: INDAPAMIDE
     Indication: HYPERTENSION
     Dosage: UNK
     Dates: start: 2016
  3. FUNGIZONE [Concomitant]
     Active Substance: AMPHOTERICIN B
     Indication: VOMITING
  4. CISPLATINE [Suspect]
     Active Substance: CISPLATIN
     Indication: BLADDER TRANSITIONAL CELL CARCINOMA
     Dosage: 70 MG/M2, OVER 2 TO 4 HOURS ON DAY 1 OF EACH 21?DAY CYCLE
     Route: 041
     Dates: start: 20200409
  5. DIFFU K [Concomitant]
     Active Substance: POTASSIUM CHLORIDE
     Indication: NAUSEA
     Dosage: UNK
     Dates: start: 20200619
  6. FUNGIZONE [Concomitant]
     Active Substance: AMPHOTERICIN B
     Indication: NAUSEA
     Dosage: UNK
     Dates: start: 20200619
  7. METOCLOPRAMIDE. [Concomitant]
     Active Substance: METOCLOPRAMIDE
     Indication: NAUSEA
     Dosage: UNK
     Dates: start: 202005
  8. DIFFU K [Concomitant]
     Active Substance: POTASSIUM CHLORIDE
     Indication: VOMITING
  9. GEMCITABINE HYDROCHLORIDE. [Suspect]
     Active Substance: GEMCITABINE HYDROCHLORIDE
     Indication: BLADDER TRANSITIONAL CELL CARCINOMA
     Dosage: 1000 MG/M2, OVER 30 MINUTES ON DAYS 1 AND 8 OF EACH 21?DAY CYCLE
     Route: 041
     Dates: start: 20200409, end: 20200807

REACTIONS (1)
  - Sepsis [Not Recovered/Not Resolved]

NARRATIVE: CASE EVENT DATE: 20200825
